FAERS Safety Report 9753572 (Version 2)
Quarter: 2014Q2

REPORT INFORMATION
  Report Type: Spontaneous
  Country: US (occurrence: CN)
  Receive Date: 20131213
  Receipt Date: 20140506
  Transmission Date: 20141212
  Serious: Yes (Death)
  Sender: FDA-Public Use
  Company Number: US-TMC-CABO-13003738

PATIENT
  Age: 54 Year
  Sex: Male

DRUGS (1)
  1. COMETRIQ [Suspect]
     Indication: LUNG NEOPLASM MALIGNANT
     Dosage: 140 MG, QOD
     Route: 048
     Dates: start: 201302, end: 201311

REACTIONS (2)
  - Death [Fatal]
  - Off label use [Unknown]
